FAERS Safety Report 6094086-9 (Version None)
Quarter: 2009Q1

REPORT INFORMATION
  Report Type: 
  Country: None (occurrence: None)
  Receive Date: 20090226
  Receipt Date: 20090218
  Transmission Date: 20090719
  Serious: Yes (Death, Hospitalization)
  Sender: FDA-Public Use
  Company Number: AU-JNJFOC-20090205079

PATIENT
  Age: 99 Year
  Sex: Male

DRUGS (2)
  1. REMINYL [Suspect]
     Indication: DRUG USE FOR UNKNOWN INDICATION
     Route: 048
  2. ARICEPT [Suspect]
     Indication: DRUG USE FOR UNKNOWN INDICATION
     Route: 048

REACTIONS (4)
  - AGITATION [None]
  - FALL [None]
  - PSYCHOTIC DISORDER [None]
  - SUBDURAL HAEMATOMA [None]
